FAERS Safety Report 21950883 (Version 1)
Quarter: 2023Q1

REPORT INFORMATION
  Report Type: Other
  Country: None (occurrence: JP)
  Receive Date: 20230203
  Receipt Date: 20230203
  Transmission Date: 20230418
  Serious: Yes (Hospitalization)
  Sender: FDA-Public Use
  Company Number: JP-B.Braun Medical Inc.-2137474

PATIENT
  Age: 84 Year
  Sex: Female

DRUGS (4)
  1. ACETAMINOPHEN [Suspect]
     Active Substance: ACETAMINOPHEN
     Indication: Back pain
  2. TIARAMIDE [Concomitant]
     Active Substance: TIARAMIDE
  3. LOXOPROFEN [Concomitant]
     Active Substance: LOXOPROFEN
  4. ELDECALCITOL [Concomitant]
     Active Substance: ELDECALCITOL

REACTIONS (2)
  - Drug ineffective [Recovering/Resolving]
  - Acute kidney injury [Recovering/Resolving]
